FAERS Safety Report 17566782 (Version 1)
Quarter: 2020Q1

REPORT INFORMATION
  Report Type: Spontaneous
  Country: TR (occurrence: TR)
  Receive Date: 20200320
  Receipt Date: 20200320
  Transmission Date: 20200409
  Serious: Yes (Hospitalization)
  Sender: FDA-Public Use
  Company Number: TR-JNJFOC-20200322779

PATIENT
  Age: 53 Year
  Sex: Female

DRUGS (6)
  1. DESAL [FUROSEMIDE] [Concomitant]
     Dosage: UNK
  2. RIVAROXABAN [Suspect]
     Active Substance: RIVAROXABAN
     Indication: ATRIAL FIBRILLATION
     Dosage: 20 MG, QD
     Route: 048
  3. BELOC [ATENOLOL] [Concomitant]
     Active Substance: ATENOLOL
     Dosage: UNK
  4. PLAVIX [Concomitant]
     Active Substance: CLOPIDOGREL BISULFATE
     Dosage: UNK
  5. SELECTRA [ESCITALOPRAM OXALATE] [Concomitant]
     Dosage: UNK
  6. EPDANTOIN [Concomitant]
     Dosage: UNK

REACTIONS (1)
  - Cerebrovascular disorder [Not Recovered/Not Resolved]
